FAERS Safety Report 24592203 (Version 3)
Quarter: 2024Q4

REPORT INFORMATION
  Report Type: Report from Study
  Country: CA (occurrence: CA)
  Receive Date: 20241108
  Receipt Date: 20241220
  Transmission Date: 20250115
  Serious: Yes (Hospitalization, Other)
  Sender: ROCHE
  Company Number: CA-ROCHE-10000125261

PATIENT
  Age: 56 Year
  Sex: Female
  Weight: 82 kg

DRUGS (12)
  1. ACTEMRA [Suspect]
     Active Substance: TOCILIZUMAB
     Indication: Rheumatoid arthritis
     Dosage: NO PIRS RECEIVED
     Route: 042
     Dates: start: 20200427
  2. ACTEMRA [Suspect]
     Active Substance: TOCILIZUMAB
     Dosage: DRUG DOSE FIRST ADMINISTERED IS 672 MG MILLIGRAM(S)?MOREDOSAGEINFO IS B5031B07, B4018B08
     Route: 042
  3. ACTEMRA [Suspect]
     Active Substance: TOCILIZUMAB
     Route: 042
  4. ACTEMRA [Suspect]
     Active Substance: TOCILIZUMAB
     Route: 042
  5. BREO ELLIPTA [Concomitant]
     Active Substance: FLUTICASONE FUROATE\VILANTEROL TRIFENATATE
  6. ESTROGEL [Concomitant]
     Active Substance: ESTRADIOL
  7. PREDNISONE [Concomitant]
     Active Substance: PREDNISONE
  8. PROGESTERONE [Concomitant]
     Active Substance: PROGESTERONE
  9. ROSUVASTATIN [Concomitant]
     Active Substance: ROSUVASTATIN
  10. VITAMIN D3 [Concomitant]
     Active Substance: CHOLECALCIFEROL
  11. PROLENSA [Concomitant]
     Active Substance: BROMFENAC SODIUM
  12. MEXIDEX [Concomitant]

REACTIONS (4)
  - Cataract [Recovered/Resolved]
  - Lacrimation increased [Recovered/Resolved]
  - Vision blurred [Recovered/Resolved]
  - Cataract [Recovered/Resolved]

NARRATIVE: CASE EVENT DATE: 20241101
